FAERS Safety Report 7312297-9 (Version None)
Quarter: 2011Q1

REPORT INFORMATION
  Report Type: 
  Country: None (occurrence: None)
  Receive Date: 20110224
  Receipt Date: 20110218
  Transmission Date: 20110831
  Serious: Yes (Hospitalization)
  Sender: FDA-Public Use
  Company Number: B0701309A

PATIENT
  Age: 70 Year
  Sex: Male

DRUGS (1)
  1. REVOLADE [Suspect]
     Route: 048
     Dates: start: 20101217, end: 20110217

REACTIONS (2)
  - WHITE BLOOD CELL COUNT DECREASED [None]
  - MYALGIA [None]
